FAERS Safety Report 13968387 (Version 1)
Quarter: 2017Q3

REPORT INFORMATION
  Report Type: Report from Study
  Country: US (occurrence: BR)
  Receive Date: 20170914
  Receipt Date: 20170914
  Transmission Date: 20171128
  Serious: Yes (Other)
  Sender: FDA-Public Use
  Company Number: US-SUNOVION-2017SUN004027

PATIENT
  Sex: Female
  Weight: 73 kg

DRUGS (3)
  1. ALENIA [Concomitant]
     Active Substance: BUDESONIDE\FORMOTEROL FUMARATE
  2. INDACATEROL AND GLYCOPYRROLATE [Suspect]
     Active Substance: GLYCOPYRROLATE\INDACATEROL MALEATE
     Indication: CHRONIC OBSTRUCTIVE PULMONARY DISEASE
     Dosage: 1 DF (50 UG OF GLYCOPYRRONIUM BROMIDE/ 110 UG OF , QD
     Route: 055
     Dates: start: 201606
  3. TORSILAX [Concomitant]
     Active Substance: ACETAMINOPHEN\CAFFEINE\CARISOPRODOL\DICLOFENAC

REACTIONS (8)
  - Blood pressure increased [Recovering/Resolving]
  - Lung disorder [Unknown]
  - Malaise [Unknown]
  - Dysgeusia [Unknown]
  - Fatigue [Unknown]
  - Pain [Unknown]
  - Gait inability [Unknown]
  - Cough [Unknown]
